FAERS Safety Report 4653446-0 (Version None)
Quarter: 2005Q2

REPORT INFORMATION
  Report Type: 
  Country: None (occurrence: None)
  Receive Date: 20050503
  Receipt Date: 20050415
  Transmission Date: 20051028
  Serious: Yes (Other)
  Sender: FDA-Public Use
  Company Number: CEL-2005-00516-SLO

PATIENT
  Age: 44 Year
  Sex: Female
  Weight: 73 kg

DRUGS (5)
  1. DIPENTUM [Suspect]
     Indication: DIARRHOEA
     Dosage: 2/D, PO
     Route: 048
     Dates: start: 20040716, end: 20041112
  2. CONTRACEPTIVE TABLETS [Concomitant]
  3. CORTISOL [Concomitant]
  4. THYROXINE TABLETS (LEVOTHYROXINE SODIUM) [Concomitant]
  5. CONTRACEPTIVE INJECTION [Concomitant]

REACTIONS (1)
  - THROMBOTIC THROMBOCYTOPENIC PURPURA [None]
